FAERS Safety Report 24801756 (Version 3)
Quarter: 2025Q4

REPORT INFORMATION
  Report Type: Spontaneous
  Country: US (occurrence: US)
  Receive Date: 20250102
  Receipt Date: 20251016
  Transmission Date: 20260118
  Serious: No
  Sender: PFIZER
  Company Number: US-PFIZER INC-202400333174

PATIENT
  Age: 65 Year
  Sex: Female

DRUGS (1)
  1. CIBINQO [Suspect]
     Active Substance: ABROCITINIB
     Indication: Dermatitis atopic
     Dosage: 200 MG, 1X/DAY
     Route: 048

REACTIONS (4)
  - Alopecia areata [Unknown]
  - Fungal infection [Unknown]
  - Erythema [Unknown]
  - Pruritus [Unknown]
